FAERS Safety Report 4693970-8 (Version None)
Quarter: 2005Q2

REPORT INFORMATION
  Report Type: 
  Country: None (occurrence: None)
  Receive Date: 20050616
  Receipt Date: 20050609
  Transmission Date: 20051028
  Serious: Yes (Other)
  Sender: FDA-Public Use
  Company Number: S05-USA-02983-01

PATIENT
  Sex: Male

DRUGS (2)
  1. NAMENDA [Suspect]
  2. AMANTADINE [Concomitant]

REACTIONS (1)
  - PARKINSONISM [None]
